FAERS Safety Report 10149994 (Version 2)
Quarter: 2014Q3

REPORT INFORMATION
  Report Type: Spontaneous
  Country: CA (occurrence: CA)
  Receive Date: 20140502
  Receipt Date: 20140925
  Transmission Date: 20150326
  Serious: Yes (Life-Threatening, Other)
  Sender: FDA-Public Use
  Company Number: CA-PFIZER INC-2014121555

PATIENT
  Age: 56 Year
  Sex: Male

DRUGS (7)
  1. PANTOLOC [Suspect]
     Active Substance: PANTOPRAZOLE SODIUM
     Dosage: 40 MG, UNK, (3RD DOSE FOR LIFE 2 DOSES THE PRECEDING WEEK, AND 1 DOSE 2H BEFORE THE REACTION)
     Route: 048
  2. TEVA-VALSARTAN/HCTZ [Concomitant]
     Dosage: 160/12.5 MG
  3. SANDOZ BISOPROLOL [Concomitant]
     Dosage: 50 MG, UNK
  4. SYNTHROID [Concomitant]
     Active Substance: LEVOTHYROXINE SODIUM
     Dosage: 112 UG, UNK
  5. TEVA-ROSUVASTATIN [Concomitant]
     Dosage: 20 MG, UNK
  6. ASPIRIN. [Suspect]
     Active Substance: ASPIRIN
     Indication: PROPHYLAXIS
     Dosage: 80 MG, 1X/DAY
     Route: 048
     Dates: start: 2011, end: 20121015
  7. ATIVAN [Concomitant]
     Active Substance: LORAZEPAM
     Dosage: 2 G, UNK

REACTIONS (1)
  - Anaphylactic reaction [Recovered/Resolved]

NARRATIVE: CASE EVENT DATE: 20121029
